FAERS Safety Report 4532339-3 (Version None)
Quarter: 2004Q4

REPORT INFORMATION
  Report Type: 
  Country: None (occurrence: None)
  Receive Date: 20041206
  Receipt Date: 20041026
  Transmission Date: 20050328
  Serious: No
  Sender: FDA-Public Use
  Company Number: US_0411107678

PATIENT
  Age: 87 Year
  Sex: Male

DRUGS (3)
  1. CYMBALTA [Suspect]
  2. KLONOPIN [Concomitant]
  3. RISPERDAL [Concomitant]

REACTIONS (1)
  - HYPOTENSION [None]
